FAERS Safety Report 15716908 (Version 2)
Quarter: 2019Q2

REPORT INFORMATION
  Report Type: Spontaneous
  Country: AT (occurrence: AT)
  Receive Date: 20181213
  Receipt Date: 20190404
  Transmission Date: 20190711
  Serious: Yes (Hospitalization, Other)
  Sender: FDA-Public Use
  Company Number: AT-ACCORD-095326

PATIENT
  Age: 27 Year
  Sex: Male

DRUGS (3)
  1. MYCOPHENOLIC ACID. [Suspect]
     Active Substance: MYCOPHENOLIC ACID
     Indication: IMMUNOSUPPRESSION
     Dosage: 1 G, DAILY, ALSO 500 MG. REDUCED THE DOSAGE OF MMF FROM 1 TO 500 MG
  2. TACROLIMUS. [Suspect]
     Active Substance: TACROLIMUS
     Indication: IMMUNOSUPPRESSION
     Dosage: TROUGH LEVEL BETWEEN 8-10 UG/L
  3. PREDNISOLONE. [Suspect]
     Active Substance: PREDNISOLONE
     Indication: IMMUNOSUPPRESSION
     Dosage: DAILY, LATER ON DECREASED ON, 20 MG
     Route: 048

REACTIONS (2)
  - Smooth muscle cell neoplasm [Recovered/Resolved]
  - Epstein-Barr virus infection [Recovered/Resolved]
